FAERS Safety Report 25950830 (Version 4)
Quarter: 2025Q4

REPORT INFORMATION
  Report Type: Spontaneous
  Country: US (occurrence: US)
  Receive Date: 20251023
  Receipt Date: 20251209
  Transmission Date: 20260118
  Serious: Yes (Hospitalization)
  Sender: SANOFI AVENTIS
  Company Number: US-SA-2025SA314289

PATIENT
  Age: 65 Year
  Sex: Female

DRUGS (3)
  1. DUPIXENT [Suspect]
     Active Substance: DUPILUMAB
     Indication: Asthma
     Dosage: 600 MG, 1X
     Route: 058
     Dates: start: 20251003, end: 20251003
  2. DUPIXENT [Suspect]
     Active Substance: DUPILUMAB
     Indication: Chronic obstructive pulmonary disease
     Dosage: 300 MG, QOW
     Route: 058
     Dates: start: 20251017
  3. TADALAFIL [Concomitant]
     Active Substance: TADALAFIL

REACTIONS (15)
  - Hospitalisation [Unknown]
  - Ear discomfort [Unknown]
  - Muscle spasms [Unknown]
  - Hypoacusis [Unknown]
  - Sleep disorder due to a general medical condition [Unknown]
  - Visual impairment [Unknown]
  - Nasal congestion [Unknown]
  - Pyrexia [Unknown]
  - Injection site rash [Unknown]
  - Headache [Not Recovered/Not Resolved]
  - Dizziness [Unknown]
  - Diarrhoea [Unknown]
  - Injection site pain [Unknown]
  - Injection site erythema [Not Recovered/Not Resolved]
  - Wrong technique in product usage process [Unknown]

NARRATIVE: CASE EVENT DATE: 20250101
